FAERS Safety Report 15626580 (Version 1)
Quarter: 2018Q4

REPORT INFORMATION
  Report Type: Spontaneous
  Country: US (occurrence: US)
  Receive Date: 20181116
  Receipt Date: 20181116
  Transmission Date: 20190205
  Serious: No
  Sender: FDA-Public Use
  Company Number: US-STRONGBRIDGE BIOPHARMA-2018-STR-000385

PATIENT
  Age: 38 Year
  Sex: Female

DRUGS (1)
  1. KEVEYIS [Suspect]
     Active Substance: DICHLORPHENAMIDE
     Indication: FAMILIAL PERIODIC PARALYSIS
     Dosage: 2 DF, BID
     Route: 048
     Dates: start: 20180427

REACTIONS (2)
  - Disease recurrence [Unknown]
  - Intentional underdose [Unknown]

NARRATIVE: CASE EVENT DATE: 201810
